FAERS Safety Report 24751046 (Version 1)
Quarter: 2024Q4

REPORT INFORMATION
  Report Type: Spontaneous
  Country: NO (occurrence: NO)
  Receive Date: 20241219
  Receipt Date: 20241219
  Transmission Date: 20250114
  Serious: Yes (Death, Hospitalization, Other)
  Sender: VELOXIS PHARMACEUTICALS
  Company Number: NO-ROCHE-2143044

PATIENT
  Age: 23 Year
  Sex: Male

DRUGS (24)
  1. TACROLIMUS [Suspect]
     Active Substance: TACROLIMUS
     Indication: Prophylaxis against graft versus host disease
     Dosage: UNK
     Route: 065
  2. BUSULFAN [Suspect]
     Active Substance: BUSULFAN
     Indication: Immune tolerance induction
     Dosage: 3.2 MG/KG, QD, AT DAYS -4 AND -3
     Route: 065
  3. BUSULFAN [Suspect]
     Active Substance: BUSULFAN
     Indication: Bone marrow failure
  4. BUSULFAN [Suspect]
     Active Substance: BUSULFAN
     Indication: Myelosuppression
  5. CYCLOPHOSPHAMIDE [Suspect]
     Active Substance: CYCLOPHOSPHAMIDE
     Indication: Immune tolerance induction
     Dosage: DAYS -6 AND -5
     Route: 065
  6. CYCLOPHOSPHAMIDE [Suspect]
     Active Substance: CYCLOPHOSPHAMIDE
     Indication: Stem cell transplant
     Dosage: 4 MG/KG, DAYS-6 AND -5
     Route: 065
  7. CYCLOPHOSPHAMIDE [Suspect]
     Active Substance: CYCLOPHOSPHAMIDE
     Indication: Prophylaxis against transplant rejection
     Dosage: 50 MG/KG (DAYS +3 AND +4 POSTTRANSPLANT)
     Route: 065
  8. CYCLOPHOSPHAMIDE [Suspect]
     Active Substance: CYCLOPHOSPHAMIDE
     Indication: Diffuse large B-cell lymphoma
  9. MYCOPHENOLATE MOFETIL [Suspect]
     Active Substance: MYCOPHENOLATE MOFETIL
     Indication: Prophylaxis against graft versus host disease
     Dosage: UNK
     Route: 065
  10. FLUDARABINE [Suspect]
     Active Substance: FLUDARABINE PHOSPHATE
     Indication: Immune tolerance induction
     Dosage: 30 MG/M2, DAY -6 TO -2
     Route: 065
  11. FLUDARABINE [Suspect]
     Active Substance: FLUDARABINE PHOSPHATE
     Indication: Prophylaxis against transplant rejection
  12. METHOTREXATE [Concomitant]
     Active Substance: METHOTREXATE
     Indication: Immunosuppressant drug therapy
     Dosage: UNK
     Route: 065
  13. METHOTREXATE [Concomitant]
     Active Substance: METHOTREXATE
     Indication: Diffuse large B-cell lymphoma recurrent
  14. METHOTREXATE [Concomitant]
     Active Substance: METHOTREXATE
     Indication: Skin lesion
  15. AZATHIOPRINE [Concomitant]
     Active Substance: AZATHIOPRINE
     Indication: Immunosuppressant drug therapy
     Dosage: UNK
     Route: 065
  16. AZATHIOPRINE [Concomitant]
     Active Substance: AZATHIOPRINE
     Indication: Skin lesion
  17. RITUXIMAB [Concomitant]
     Active Substance: RITUXIMAB
     Indication: Diffuse large B-cell lymphoma
     Dosage: UNK
     Route: 065
  18. VINCRISTINE [Concomitant]
     Active Substance: VINCRISTINE
     Indication: Diffuse large B-cell lymphoma
     Dosage: UNK
     Route: 065
  19. DOXORUBICIN [Concomitant]
     Active Substance: DOXORUBICIN
     Indication: Diffuse large B-cell lymphoma
     Dosage: UNK
     Route: 065
  20. ETOPOSIDE [Concomitant]
     Active Substance: ETOPOSIDE
     Indication: Diffuse large B-cell lymphoma recurrent
     Dosage: UNK
     Route: 065
  21. CARMUSTINE [Concomitant]
     Active Substance: CARMUSTINE
     Indication: Cutaneous T-cell lymphoma
     Dosage: UNK
     Route: 065
  22. CARMUSTINE [Concomitant]
     Active Substance: CARMUSTINE
     Indication: Cutaneous T-cell lymphoma
  23. IFEX [Concomitant]
     Active Substance: IFOSFAMIDE
     Indication: Diffuse large B-cell lymphoma recurrent
     Dosage: UNK
     Route: 065
  24. PREDNISOLONE [Concomitant]
     Active Substance: PREDNISOLONE
     Indication: Diffuse large B-cell lymphoma
     Dosage: UNK
     Route: 065

REACTIONS (9)
  - Herpes simplex test positive [Fatal]
  - Hypogammaglobulinaemia [Fatal]
  - Skin lesion [Unknown]
  - Herpes simplex [Fatal]
  - Pneumocystis jirovecii pneumonia [Fatal]
  - Staphylococcal infection [Fatal]
  - Candida infection [Fatal]
  - Cytomegalovirus infection reactivation [Fatal]
  - Intentional product use issue [Unknown]
